FAERS Safety Report 5899694-3 (Version None)
Quarter: 2008Q3

REPORT INFORMATION
  Report Type: 
  Country: None (occurrence: None)
  Receive Date: 20080926
  Receipt Date: 20080912
  Transmission Date: 20090109
  Serious: Yes (Hospitalization)
  Sender: FDA-Public Use
  Company Number: US-ELI_LILLY_AND_COMPANY-US200809000840

PATIENT
  Age: 86 Year
  Sex: Male
  Weight: 77.551 kg

DRUGS (8)
  1. FORTEO [Suspect]
     Indication: OSTEOPOROSIS
     Dates: start: 20071101
  2. CYMBALTA [Concomitant]
     Dosage: 30 MG, DAILY (1/D)
  3. LYRICA [Concomitant]
     Dosage: 50 MG, 2/D
  4. LANOXIN [Concomitant]
     Dosage: 0.125 UNK, DAILY (1/D)
  5. COREG [Concomitant]
     Dosage: 25 MG, 2/D
  6. PROTONIX [Concomitant]
     Dosage: 40 MG, EACH MORNING
  7. COUMADIN [Concomitant]
     Dosage: 5 MG, DAILY (1/D)
  8. COZAAR [Concomitant]
     Dosage: 50 MG, DAILY (1/D)

REACTIONS (4)
  - DEHYDRATION [None]
  - FALL [None]
  - HYPOVOLAEMIA [None]
  - PRESYNCOPE [None]
